FAERS Safety Report 10560410 (Version 1)
Quarter: 2014Q4

REPORT INFORMATION
  Report Type: Spontaneous
  Country: DE (occurrence: DE)
  Receive Date: 20141103
  Receipt Date: 20141103
  Transmission Date: 20150529
  Serious: Yes (Other)
  Sender: FDA-Public Use
  Company Number: DE-BAYER-2014-159538

PATIENT
  Age: 38 Year
  Sex: Male

DRUGS (1)
  1. ASPIRIN. [Suspect]
     Active Substance: ASPIRIN
     Indication: HEADACHE
     Dosage: 500 MG, ONCE

REACTIONS (5)
  - Dry skin [None]
  - Mouth swelling [None]
  - Skin exfoliation [None]
  - Rash [None]
  - Peripheral swelling [None]

NARRATIVE: CASE EVENT DATE: 20140921
